FAERS Safety Report 4771652-1 (Version None)
Quarter: 2005Q3

REPORT INFORMATION
  Report Type: 
  Country: None (occurrence: None)
  Receive Date: 20050916
  Receipt Date: 20050210
  Transmission Date: 20060218
  Serious: Yes (Other)
  Sender: FDA-Public Use
  Company Number: ESWYE071028SEP04

PATIENT
  Sex: Male

DRUGS (4)
  1. ENBREL [Suspect]
     Indication: RHEUMATOID ARTHRITIS
     Route: 058
     Dates: start: 20031029
  2. DICLOFENAC [Concomitant]
     Route: 065
     Dates: start: 20000101
  3. PAROXETINE [Concomitant]
     Route: 065
     Dates: start: 20030101
  4. LEVOTHYROXINE SODIUM [Concomitant]
     Route: 065

REACTIONS (2)
  - CUTANEOUS SARCOIDOSIS [None]
  - DYSPNOEA [None]
